FAERS Safety Report 4869114-6 (Version None)
Quarter: 2005Q4

REPORT INFORMATION
  Report Type: 
  Country: None (occurrence: None)
  Receive Date: 20051230
  Receipt Date: 20051220
  Transmission Date: 20060501
  Serious: Yes (Hospitalization)
  Sender: FDA-Public Use
  Company Number: US-JNJFOC-20051003466

PATIENT
  Sex: Female
  Weight: 87.54 kg

DRUGS (25)
  1. REMICADE [Suspect]
     Route: 042
  2. REMICADE [Suspect]
     Route: 042
  3. REMICADE [Suspect]
     Route: 042
  4. REMICADE [Suspect]
     Route: 042
  5. REMICADE [Suspect]
     Route: 042
  6. REMICADE [Suspect]
     Indication: RHEUMATOID ARTHRITIS
     Route: 042
  7. PNEUMONIA 23 [Concomitant]
     Dosage: GIVEN RIGHT DELTOID
  8. PREDNISONE 50MG TAB [Concomitant]
     Route: 048
  9. PREDNISONE 50MG TAB [Concomitant]
     Route: 048
  10. PLAQUENIL [Concomitant]
     Route: 048
  11. ASPIRIN [Concomitant]
     Route: 048
  12. CALCIUM WITH VITAMIN D [Concomitant]
     Route: 048
  13. CALCIUM WITH VITAMIN D [Concomitant]
     Route: 048
  14. CALCIUM WITH VITAMIN D [Concomitant]
     Route: 048
  15. MULTI-VITAMIN [Concomitant]
  16. MULTI-VITAMIN [Concomitant]
  17. MULTI-VITAMIN [Concomitant]
  18. MULTI-VITAMIN [Concomitant]
  19. MULTI-VITAMIN [Concomitant]
  20. MULTI-VITAMIN [Concomitant]
  21. MULTI-VITAMIN [Concomitant]
  22. MULTI-VITAMIN [Concomitant]
     Dosage: DAILY
  23. METHOTREXATE [Concomitant]
  24. FOLIC ACID [Concomitant]
  25. TYLENOL W/ CODEINE NO. 3 [Concomitant]
     Route: 048

REACTIONS (14)
  - BREAST MICROCALCIFICATION [None]
  - CARDIOMEGALY [None]
  - CHOLELITHIASIS [None]
  - DIARRHOEA [None]
  - DRUG INEFFECTIVE [None]
  - ENDOMETRIAL CANCER METASTATIC [None]
  - HEPATOMEGALY [None]
  - LUNG NEOPLASM [None]
  - OSTEOARTHRITIS [None]
  - OVARIAN CYST [None]
  - RENAL CYST [None]
  - RHINITIS [None]
  - UMBILICAL HERNIA [None]
  - WHOLE BLOOD TRANSFUSION [None]
